FAERS Safety Report 23818878 (Version 1)
Quarter: 2024Q2

REPORT INFORMATION
  Report Type: Other
  Country: PL (occurrence: PL)
  Receive Date: 20240506
  Receipt Date: 20240506
  Transmission Date: 20240715
  Serious: Yes (Hospitalization, Other)
  Sender: FDA-Public Use
  Company Number: PL-ASTELLAS-2020US040659

PATIENT
  Age: 41 Year
  Sex: Male

DRUGS (6)
  1. TACROLIMUS [Interacting]
     Active Substance: TACROLIMUS
     Indication: Allogenic stem cell transplantation
     Dosage: UNK UNK, UNKNOWN FREQ.
     Route: 065
  2. BENDAMUSTINE HYDROCHLORIDE [Interacting]
     Active Substance: BENDAMUSTINE HYDROCHLORIDE
     Indication: Chronic lymphocytic leukaemia
     Dosage: POWDER FOR INJECTION
     Route: 042
     Dates: start: 201306
  3. BENDAMUSTINE HYDROCHLORIDE [Interacting]
     Active Substance: BENDAMUSTINE HYDROCHLORIDE
     Dosage: POWDER FOR INJECTION
     Route: 042
     Dates: start: 201811
  4. POSACONAZOLE [Interacting]
     Active Substance: POSACONAZOLE
     Indication: Antifungal prophylaxis
     Dosage: UNK UNK, UNKNOWN FREQ.
  5. RITUXIMAB [Concomitant]
     Active Substance: RITUXIMAB
     Indication: Chronic lymphocytic leukaemia
     Dosage: UNK UNK, UNKNOWN FREQ.
     Dates: start: 201306
  6. RITUXIMAB [Concomitant]
     Active Substance: RITUXIMAB
     Dosage: UNK UNK, UNKNOWN FREQ.
     Dates: start: 201811

REACTIONS (5)
  - Immunosuppressant drug level increased [Unknown]
  - Thrombotic microangiopathy [Unknown]
  - Urinary tract infection [Unknown]
  - Clostridium difficile infection [Unknown]
  - Off label use [Unknown]
